FAERS Safety Report 16534331 (Version 1)
Quarter: 2019Q3

REPORT INFORMATION
  Report Type: Spontaneous
  Country: SE (occurrence: SE)
  Receive Date: 20190705
  Receipt Date: 20190705
  Transmission Date: 20191004
  Serious: Yes (Life-Threatening, Hospitalization)
  Sender: FDA-Public Use
  Company Number: SE-SCIEGEN PHARMACEUTICALS INC-2019SCILIT00208

PATIENT
  Age: 57 Year
  Sex: Male

DRUGS (4)
  1. LAMOTRIGINE TABLETS [Suspect]
     Active Substance: LAMOTRIGINE
  2. OXAZEPAM. [Suspect]
     Active Substance: OXAZEPAM
  3. ALCOHOL. [Suspect]
     Active Substance: ALCOHOL
  4. QUETIAPINE. [Suspect]
     Active Substance: QUETIAPINE

REACTIONS (3)
  - Bezoar [Unknown]
  - Overdose [Unknown]
  - Depressed level of consciousness [Unknown]
